FAERS Safety Report 10112284 (Version 2)
Quarter: 2014Q2

REPORT INFORMATION
  Report Type: Spontaneous
  Country: US (occurrence: US)
  Receive Date: 20140425
  Receipt Date: 20140630
  Transmission Date: 20141212
  Serious: Yes (Death)
  Sender: FDA-Public Use
  Company Number: US-BRISTOL-MYERS SQUIBB COMPANY-20643862

PATIENT
  Age: 44 Year
  Sex: Female

DRUGS (10)
  1. SPRYCEL (CML) TABS 70 MG [Suspect]
     Indication: ACUTE LYMPHOCYTIC LEUKAEMIA
     Route: 048
  2. SPRYCEL (CML) TABS 70 MG [Suspect]
     Indication: ACUTE LYMPHOCYTIC LEUKAEMIA
     Route: 048
  3. SPRYCEL (CML) TABS 70 MG [Suspect]
     Indication: ACUTE LYMPHOCYTIC LEUKAEMIA
     Route: 048
  4. SPRYCEL (CML) TABS 70 MG [Suspect]
     Indication: ACUTE LYMPHOCYTIC LEUKAEMIA
     Route: 048
  5. AMOXICILLIN [Concomitant]
  6. METOCLOPRAMIDE [Concomitant]
  7. MIRTAZAPINE [Concomitant]
  8. ACYCLOVIR [Concomitant]
  9. ZOLPIDEM [Concomitant]
  10. MORFIN [Concomitant]

REACTIONS (1)
  - Malignant neoplasm progression [Fatal]
